FAERS Safety Report 24404081 (Version 1)
Quarter: 2024Q4

REPORT INFORMATION
  Report Type: Spontaneous
  Country: US (occurrence: None)
  Receive Date: 20241004
  Receipt Date: 20241004
  Transmission Date: 20250115
  Serious: Yes (unspecified)
  Sender: Public
  Company Number: None

PATIENT
  Age: 78 Year
  Sex: Male
  Weight: 68.04 kg

DRUGS (1)
  1. ABIRATERONE [Suspect]
     Active Substance: ABIRATERONE
     Indication: Prostate cancer
     Dosage: FREQUENCY : DAILY;?
     Route: 048
     Dates: start: 20231019, end: 20240928

REACTIONS (6)
  - Fatigue [None]
  - Dizziness [None]
  - Gait disturbance [None]
  - Fall [None]
  - Nonspecific reaction [None]
  - Blood potassium decreased [None]

NARRATIVE: CASE EVENT DATE: 20240912
